FAERS Safety Report 20608994 (Version 2)
Quarter: 2022Q1

REPORT INFORMATION
  Report Type: Spontaneous
  Country: ZA (occurrence: ZA)
  Receive Date: 20220317
  Receipt Date: 20220331
  Transmission Date: 20220423
  Serious: Yes (Hospitalization)
  Sender: FDA-Public Use
  Company Number: ZA-TEVA-2022-ZA-2016755

PATIENT
  Age: 11 Year
  Sex: Male

DRUGS (5)
  1. VINCRISTINE [Suspect]
     Active Substance: VINCRISTINE
     Indication: Ewing^s sarcoma
     Dosage: 1.5 MG/M2, AS PER THE CHILDREN^S ONCOLOGY GROUP EWS PROTOCOL (AEWS0031)
     Route: 065
  2. DOXORUBICIN [Suspect]
     Active Substance: DOXORUBICIN
     Indication: Ewing^s sarcoma
     Dosage: 75 MG/M2, AS PER THE CHILDREN^S ONCOLOGY GROUP EWS PROTOCOL (AEWS0031)
     Route: 065
  3. ETOPOSIDE [Suspect]
     Active Substance: ETOPOSIDE
     Indication: Ewing^s sarcoma
     Dosage: 100 MG/M2, FOR 5 DAYS PER COURSE AS PER THE CHILDREN^S ONCOLOGY GROUP EWS PROTOCOL (AEWS0031)
     Route: 065
  4. CYCLOPHOSPHAMIDE [Suspect]
     Active Substance: CYCLOPHOSPHAMIDE
     Indication: Ewing^s sarcoma
     Dosage: 1.2 G/M2 (AS PER THE CHILDREN^S ONCOLOGY GROUP EWS PROTOCOL (AEWS0031))
     Route: 065
  5. IFOSFAMIDE [Suspect]
     Active Substance: IFOSFAMIDE
     Indication: Ewing^s sarcoma
     Dosage: 1.8 G/M2 (FOR 5 DAYS PER COURSE AS PER THE CHILDREN^S ONCOLOGY GROUP EWS PROTOCOL (AEWS0031))
     Route: 065

REACTIONS (2)
  - Ewing^s sarcoma [Unknown]
  - Malignant transformation [Unknown]
